FAERS Safety Report 8412962-6 (Version None)
Quarter: 2012Q2

REPORT INFORMATION
  Report Type: 
  Country: None (occurrence: None)
  Receive Date: 20120605
  Receipt Date: 20120529
  Transmission Date: 20120825
  Serious: No
  Sender: FDA-Public Use
  Company Number: US-AMGEN-USASP2012033441

PATIENT
  Age: 66 Year
  Sex: Male

DRUGS (5)
  1. ENBREL [Suspect]
     Indication: RHEUMATOID ARTHRITIS
     Dosage: 50 MG, QWK
     Dates: start: 20120401
  2. LEFLUNOMIDE [Concomitant]
     Dosage: UNK MG, UNK
  3. HYDROCHLOROTHIAZIDE [Concomitant]
     Dosage: 1 UNK, UNK
  4. HYDROXYCHLOROQUINE SULFATE [Concomitant]
     Dosage: UNK MG, UNK
  5. METOPROLOL TARTRATE [Concomitant]
     Dosage: 1 UNK, UNK

REACTIONS (1)
  - RASH [None]
